FAERS Safety Report 9289115 (Version 1)
Quarter: 2013Q2

REPORT INFORMATION
  Report Type: Report from Study
  Country: BR (occurrence: BR)
  Receive Date: 20130514
  Receipt Date: 20130514
  Transmission Date: 20140414
  Serious: Yes (Hospitalization, Other)
  Sender: FDA-Public Use
  Company Number: BR-ABBOTT-13P-020-1050389-00

PATIENT
  Age: 56 Year
  Sex: Male

DRUGS (3)
  1. HUMIRA [Suspect]
     Indication: RHEUMATOID ARTHRITIS
     Route: 058
  2. PREDNISONE [Concomitant]
     Indication: RHEUMATOID ARTHRITIS
  3. UNKNOWN MEDICATION [Concomitant]
     Indication: ANGIOPATHY

REACTIONS (9)
  - Angiopathy [Recovered/Resolved]
  - Rheumatoid arthritis [Unknown]
  - Cerebrovascular accident [Recovered/Resolved with Sequelae]
  - Pneumonia [Recovered/Resolved]
  - Extremity necrosis [Recovered/Resolved with Sequelae]
  - Hypokinesia [Unknown]
  - Grip strength decreased [Unknown]
  - Bedridden [Unknown]
  - Movement disorder [Unknown]
